FAERS Safety Report 17242403 (Version 1)
Quarter: 2020Q1

REPORT INFORMATION
  Report Type: Spontaneous
  Country: CA (occurrence: CA)
  Receive Date: 20200107
  Receipt Date: 20200107
  Transmission Date: 20200409
  Serious: Yes (Hospitalization, Other)
  Sender: FDA-Public Use
  Company Number: CA-SA-2020SA000525

PATIENT
  Age: 58 Year
  Sex: Male
  Weight: 112 kg

DRUGS (1)
  1. THYMOGLOBULIN [Suspect]
     Active Substance: LAPINE T-LYMPHOCYTE IMMUNE GLOBULIN
     Indication: RENAL TRANSPLANT
     Dosage: 1 DF, Q3D
     Route: 042

REACTIONS (2)
  - Serum sickness [Recovered/Resolved]
  - Renal tubular necrosis [Recovered/Resolved]
